FAERS Safety Report 4387199-0 (Version None)
Quarter: 2004Q2

REPORT INFORMATION
  Report Type: 
  Country: None (occurrence: None)
  Receive Date: 20040630
  Receipt Date: 20040323
  Transmission Date: 20050107
  Serious: No
  Sender: FDA-Public Use
  Company Number: US-GLAXOSMITHKLINE-A0504106A

PATIENT
  Age: 73 Year
  Sex: Male

DRUGS (12)
  1. ADVAIR HFA [Suspect]
     Dosage: 1PUFF TWICE PER DAY
     Route: 055
  2. SEREVENT [Suspect]
     Dosage: 1PUFF TWICE PER DAY
     Route: 055
  3. FLOVENT [Concomitant]
  4. SLO-BID [Concomitant]
  5. ZYRTEC [Concomitant]
  6. FLONASE [Concomitant]
  7. HYDROCHLOROTHIAZIDE [Concomitant]
  8. CARMEX [Concomitant]
  9. CARTIA [Concomitant]
  10. FLOMAX [Concomitant]
  11. CELEBREX [Concomitant]
  12. ASPIRIN [Concomitant]

REACTIONS (2)
  - DRUG INEFFECTIVE [None]
  - MOUTH ULCERATION [None]
